FAERS Safety Report 5671530-X (Version None)
Quarter: 2008Q1

REPORT INFORMATION
  Report Type: 
  Country: None (occurrence: None)
  Receive Date: 20080318
  Receipt Date: 20080221
  Transmission Date: 20080703
  Serious: No
  Sender: FDA-Public Use
  Company Number: US-BOEHRINGER INGELHEIM GMBH, GERMANY-2008-BP-02650BP

PATIENT
  Age: 90 Year
  Sex: Female

DRUGS (2)
  1. AGGRENOX [Suspect]
     Indication: CEREBROVASCULAR ACCIDENT
     Route: 048
     Dates: start: 20080215
  2. AGGRENOX [Suspect]
     Indication: TRANSIENT ISCHAEMIC ATTACK

REACTIONS (5)
  - DECREASED APPETITE [None]
  - DIARRHOEA [None]
  - FATIGUE [None]
  - NAUSEA [None]
  - VOMITING [None]
